FAERS Safety Report 14922567 (Version 1)
Quarter: 2018Q2

REPORT INFORMATION
  Report Type: Spontaneous
  Country: GB (occurrence: GB)
  Receive Date: 20180522
  Receipt Date: 20180522
  Transmission Date: 20180711
  Serious: Yes (Other)
  Sender: FDA-Public Use
  Company Number: GB-TEVA-2018-GB-893575

PATIENT

DRUGS (2)
  1. FENTANYL. [Suspect]
     Active Substance: FENTANYL
     Indication: EPIDURAL ANAESTHESIA
     Dosage: 2MCG/ML
     Route: 064
     Dates: start: 20170527, end: 20170527
  2. BUPIVACAINE. [Suspect]
     Active Substance: BUPIVACAINE
     Indication: EPIDURAL ANAESTHESIA
     Route: 064
     Dates: start: 20170527, end: 20170527

REACTIONS (1)
  - Bradycardia foetal [Unknown]

NARRATIVE: CASE EVENT DATE: 20170527
